FAERS Safety Report 17563139 (Version 1)
Quarter: 2020Q1

REPORT INFORMATION
  Report Type: Spontaneous
  Country: US (occurrence: US)
  Receive Date: 20200312
  Receipt Date: 20200312
  Transmission Date: 20200409
  Serious: Yes (Hospitalization)
  Sender: FDA-Public Use
  Company Number: None

PATIENT
  Age: 59 Year
  Sex: Male

DRUGS (1)
  1. ALLOPURINOL (ALLOPURINOL 300MG TAB) [Suspect]
     Active Substance: ALLOPURINOL
     Indication: BLOOD URIC ACID INCREASED
     Route: 048
     Dates: start: 20191016, end: 20191213

REACTIONS (5)
  - Nausea [None]
  - Headache [None]
  - Malaise [None]
  - Rash [None]
  - Erythema multiforme [None]

NARRATIVE: CASE EVENT DATE: 20191210
